FAERS Safety Report 19300412 (Version 1)
Quarter: 2021Q2

REPORT INFORMATION
  Report Type: Spontaneous
  Country: US (occurrence: US)
  Receive Date: 20210525
  Receipt Date: 20210525
  Transmission Date: 20210717
  Serious: Yes (Hospitalization)
  Sender: FDA-Public Use
  Company Number: None

PATIENT
  Age: 58 Year
  Sex: Female
  Weight: 58.8 kg

DRUGS (1)
  1. GALAFOLD [Suspect]
     Active Substance: MIGALASTAT HYDROCHLORIDE
     Indication: FABRY^S DISEASE
     Dosage: ?          OTHER FREQUENCY:EVERY OTHER DAY;?
     Route: 048
     Dates: start: 20210512, end: 20210524

REACTIONS (17)
  - Swelling face [None]
  - Weight decreased [None]
  - Blood pressure decreased [None]
  - Insomnia [None]
  - Oedema peripheral [None]
  - Peripheral swelling [None]
  - Body temperature increased [None]
  - Eye contusion [None]
  - Fall [None]
  - Nausea [None]
  - Headache [None]
  - Pain in extremity [None]
  - Loss of consciousness [None]
  - Hypophagia [None]
  - Decreased appetite [None]
  - Product taste abnormal [None]
  - Oxygen saturation decreased [None]

NARRATIVE: CASE EVENT DATE: 20210518
